FAERS Safety Report 24177552 (Version 8)
Quarter: 2025Q1

REPORT INFORMATION
  Report Type: Spontaneous
  Country: US (occurrence: US)
  Receive Date: 20240806
  Receipt Date: 20250115
  Transmission Date: 20250408
  Serious: Yes (Other)
  Sender: GILEAD
  Company Number: US-GILEAD-2024-0682985

PATIENT
  Age: 40 Year
  Sex: Male

DRUGS (3)
  1. TRUVADA [Suspect]
     Active Substance: EMTRICITABINE\TENOFOVIR DISOPROXIL FUMARATE
     Indication: HIV infection
     Route: 048
     Dates: start: 20150101, end: 20220101
  2. TRUVADA [Suspect]
     Active Substance: EMTRICITABINE\TENOFOVIR DISOPROXIL FUMARATE
     Route: 048
     Dates: start: 201706, end: 201909
  3. DESCOVY [Concomitant]
     Active Substance: EMTRICITABINE\TENOFOVIR ALAFENAMIDE FUMARATE

REACTIONS (7)
  - Osteonecrosis [Unknown]
  - Multiple fractures [Unknown]
  - Tibia fracture [Not Recovered/Not Resolved]
  - Acute kidney injury [Not Recovered/Not Resolved]
  - Acute kidney injury [Not Recovered/Not Resolved]
  - Bone density decreased [Unknown]
  - Bone loss [Unknown]

NARRATIVE: CASE EVENT DATE: 20190210
